FAERS Safety Report 8202208-6 (Version None)
Quarter: 2012Q1

REPORT INFORMATION
  Report Type: 
  Country: None (occurrence: None)
  Receive Date: 20120312
  Receipt Date: 20120306
  Transmission Date: 20120608
  Serious: Yes (Other)
  Sender: FDA-Public Use
  Company Number: US-PFIZER INC-2010039924

PATIENT
  Sex: Female
  Weight: 58.05 kg

DRUGS (6)
  1. LIPITOR [Suspect]
     Indication: BLOOD CHOLESTEROL INCREASED
     Dosage: 40 MG, DAILY
     Route: 048
  2. PROTONIX [Suspect]
     Dosage: UNK
  3. PLAVIX [Suspect]
     Indication: FACTOR V LEIDEN MUTATION
     Dosage: UNK
  4. TRICOR [Suspect]
     Indication: FACTOR V LEIDEN MUTATION
     Dosage: UNK
  5. COUMADIN [Suspect]
     Indication: FACTOR V LEIDEN MUTATION
     Dosage: UNK
  6. BIAXIN [Suspect]
     Dosage: UNK

REACTIONS (10)
  - THROMBOSIS [None]
  - MALAISE [None]
  - DRUG INEFFECTIVE [None]
  - ARTHRALGIA [None]
  - TRANSIENT ISCHAEMIC ATTACK [None]
  - ATRIAL FIBRILLATION [None]
  - FACTOR V LEIDEN MUTATION [None]
  - MYALGIA [None]
  - CARDIOVASCULAR DISORDER [None]
  - DRUG ADMINISTRATION ERROR [None]
